FAERS Safety Report 9007205 (Version 3)
Quarter: 2013Q1

REPORT INFORMATION
  Report Type: Spontaneous
  Country: AU (occurrence: AU)
  Receive Date: 20130110
  Receipt Date: 20130213
  Transmission Date: 20140127
  Serious: Yes (Hospitalization, Other)
  Sender: FDA-Public Use
  Company Number: AU-ROCHE-1178261

PATIENT
  Sex: Female
  Weight: 63 kg

DRUGS (6)
  1. PEGASYS [Suspect]
     Indication: HEPATITIS C
     Route: 058
     Dates: start: 20121108, end: 20121222
  2. RIBAVIRIN [Suspect]
     Indication: HEPATITIS C
     Route: 048
     Dates: start: 20121108, end: 20121230
  3. TELAPREVIR [Suspect]
     Indication: HEPATITIS C
     Route: 048
     Dates: start: 20121108, end: 20121230
  4. GABAPENTIN [Concomitant]
     Indication: NEURALGIA
     Route: 048
  5. GABAPENTIN [Concomitant]
     Route: 048
  6. PANADOL OSTEO [Concomitant]
     Indication: ANALGESIC THERAPY
     Dosage: 1 TO 2
     Route: 048

REACTIONS (7)
  - Neuropathy peripheral [Unknown]
  - Mobility decreased [Unknown]
  - Dyspnoea [Recovering/Resolving]
  - Muscular weakness [Recovering/Resolving]
  - Pain in extremity [Recovering/Resolving]
  - Anaemia [Recovered/Resolved]
  - Lower respiratory tract infection [Recovering/Resolving]
